FAERS Safety Report 23370175 (Version 1)
Quarter: 2024Q1

REPORT INFORMATION
  Report Type: Report from Study
  Country: GB (occurrence: GB)
  Receive Date: 20240105
  Receipt Date: 20240105
  Transmission Date: 20240409
  Serious: Yes (Hospitalization, Other)
  Sender: FDA-Public Use
  Company Number: GB-002147023-NVSC2022GB192776

PATIENT
  Age: 52 Year
  Sex: Male
  Weight: 67 kg

DRUGS (2)
  1. COSENTYX [Suspect]
     Active Substance: SECUKINUMAB
     Indication: Psoriasis
     Dosage: 300 MG
     Route: 058
     Dates: start: 20171010
  2. COSENTYX [Suspect]
     Active Substance: SECUKINUMAB
     Dosage: 150 MG (MONTHLY 5/C)
     Route: 058

REACTIONS (8)
  - Pancreatitis chronic [Recovered/Resolved]
  - Abdominal pain [Recovered/Resolved]
  - Vomiting [Recovered/Resolved]
  - Rectal haemorrhage [Recovered/Resolved]
  - Splenic vein occlusion [Recovered/Resolved]
  - Lower respiratory tract infection [Recovered/Resolved]
  - Chest pain [Recovered/Resolved]
  - Pilonidal disease [Recovered/Resolved]

NARRATIVE: CASE EVENT DATE: 20190401
